FAERS Safety Report 8134182-5 (Version None)
Quarter: 2012Q1

REPORT INFORMATION
  Report Type: 
  Country: None (occurrence: None)
  Receive Date: 20120209
  Receipt Date: 20120206
  Transmission Date: 20120608
  Serious: Yes (Hospitalization, Other)
  Sender: FDA-Public Use
  Company Number: 2012-001

PATIENT
  Age: 60 Year
  Sex: Male

DRUGS (2)
  1. BACKAID MAX CAPLETS, ALVA-AMCO PHARMACAL COS., INC. [Suspect]
     Indication: PAIN MANAGEMENT
     Dosage: 2 CAPLETS, ORAL
     Route: 048
     Dates: start: 20120205
  2. BACKAID MAX CAPLETS, ALVA-AMCO PHARMACAL COS., INC. [Suspect]
     Indication: DRUG EFFECT DECREASED
     Dosage: 2 CAPLETS, ORAL
     Route: 048
     Dates: start: 20120205

REACTIONS (3)
  - BLOOD PRESSURE DECREASED [None]
  - FEELING ABNORMAL [None]
  - PRESYNCOPE [None]
